FAERS Safety Report 4947157-1 (Version None)
Quarter: 2006Q1

REPORT INFORMATION
  Report Type: 
  Country: None (occurrence: None)
  Receive Date: 20060317
  Receipt Date: 20060217
  Transmission Date: 20060701
  Serious: Yes (Death)
  Sender: FDA-Public Use
  Company Number: JP-SANOFI-SYNTHELABO-A01200601398

PATIENT
  Age: 51 Year
  Sex: Female
  Weight: 70 kg

DRUGS (12)
  1. MYSLEE [Suspect]
     Indication: INSOMNIA
     Dosage: 10 MG
     Route: 048
     Dates: start: 20051107, end: 20060109
  2. LIPITOR [Suspect]
     Indication: HYPERLIPIDAEMIA
     Dosage: 10 MG
     Route: 048
     Dates: start: 20051107, end: 20060122
  3. LANSOPRAZOLE [Suspect]
     Indication: REFLUX OESOPHAGITIS
     Dosage: 15 MG
     Route: 048
     Dates: start: 20051107, end: 20060122
  4. DORAL [Suspect]
     Indication: INSOMNIA
     Dosage: 15 MG
     Route: 048
     Dates: start: 20051107, end: 20060109
  5. PREMARIN [Suspect]
     Indication: MENOPAUSAL SYMPTOMS
     Dosage: 0.625 MG
     Route: 048
     Dates: start: 20051118, end: 20060125
  6. PROVERA [Suspect]
     Indication: MENOPAUSAL SYMPTOMS
     Dosage: 2.5 MG
     Route: 048
     Dates: start: 20051108, end: 20060125
  7. GASMOTIN [Concomitant]
     Indication: GASTRIC ULCER
     Dosage: 15 MG
     Route: 048
     Dates: start: 20051107, end: 20051128
  8. NAUZELIN [Concomitant]
     Indication: GASTRIC ULCER
     Dosage: 30 MG
     Route: 048
     Dates: start: 20051107, end: 20051128
  9. HALCION [Concomitant]
     Dosage: 0.25 MG
     Route: 048
     Dates: start: 20040603, end: 20040907
  10. ROHYPNOL [Concomitant]
     Dosage: 2 MG
     Route: 048
     Dates: start: 20040603, end: 20040907
  11. AMOBAN [Concomitant]
     Dosage: 7.5 MG
     Route: 048
     Dates: start: 20040727, end: 20040907
  12. EURODIN [Concomitant]
     Dosage: 2 MG
     Route: 048
     Dates: start: 20040727, end: 20040907

REACTIONS (12)
  - DIALYSIS [None]
  - GASTRIC ULCER [None]
  - HEPATIC ENCEPHALOPATHY [None]
  - HEPATITIS FULMINANT [None]
  - HYPERLIPIDAEMIA [None]
  - INSOMNIA [None]
  - LOSS OF CONSCIOUSNESS [None]
  - MENOPAUSE [None]
  - METABOLIC ACIDOSIS [None]
  - REFLUX OESOPHAGITIS [None]
  - RENAL DISORDER [None]
  - SYSTEMIC INFLAMMATORY RESPONSE SYNDROME [None]
